FAERS Safety Report 8942802 (Version 1)
Quarter: 2012Q4

REPORT INFORMATION
  Report Type: 
  Country: JP (occurrence: JP)
  Receive Date: 20121204
  Receipt Date: 20121204
  Transmission Date: 20130627
  Serious: Yes (Hospitalization)
  Sender: FDA-Public Use
  Company Number: JP-ELI_LILLY_AND_COMPANY-JP201209007148

PATIENT
  Sex: Female

DRUGS (2)
  1. FORTEO [Suspect]
     Dosage: UNK
     Route: 058
     Dates: start: 20120903
  2. FORTEO [Suspect]
     Route: 058

REACTIONS (6)
  - Hospitalisation [Not Recovered/Not Resolved]
  - Lip swelling [Recovered/Resolved]
  - Incorrect storage of drug [Recovered/Resolved]
  - Diarrhoea [Not Recovered/Not Resolved]
  - Oedema peripheral [Unknown]
  - Drug administered at inappropriate site [Unknown]
